FAERS Safety Report 5153703-8 (Version None)
Quarter: 2006Q4

REPORT INFORMATION
  Report Type: 
  Country: None (occurrence: None)
  Receive Date: 20061118
  Receipt Date: 20061109
  Transmission Date: 20070319
  Serious: Yes (Hospitalization, Other)
  Sender: FDA-Public Use
  Company Number: GB-JNJFOC-20061102356

PATIENT
  Sex: Female
  Weight: 72 kg

DRUGS (7)
  1. REMICADE [Suspect]
     Indication: RHEUMATOID ARTHRITIS
     Route: 042
  2. LANSOPRAZOLE [Concomitant]
     Route: 065
  3. FOSAMAX [Concomitant]
     Route: 065
  4. DIHYDROCODEINE BITARTRATE INJ [Concomitant]
     Route: 065
  5. BENDROFLUAZIDE [Concomitant]
     Route: 065
  6. ATENOLOL [Concomitant]
     Route: 065
  7. PREDNISOLONE [Concomitant]
     Route: 065

REACTIONS (1)
  - BASAL CELL CARCINOMA [None]
